FAERS Safety Report 6565746-8 (Version None)
Quarter: 2010Q1

REPORT INFORMATION
  Report Type: 
  Country: None (occurrence: None)
  Receive Date: 20100201
  Receipt Date: 20090224
  Transmission Date: 20100710
  Serious: No
  Sender: FDA-Public Use
  Company Number: US-ABBOTT-09P-163-0559619-00

PATIENT
  Sex: Female
  Weight: 93.978 kg

DRUGS (4)
  1. LUPRON DEPOT [Suspect]
     Indication: ENDOMETRIOSIS
     Dosage: 1 IN 1 MONTH, 3.75 MG GIVEN
     Dates: start: 20090121, end: 20090223
  2. IRON [Concomitant]
     Indication: ANAEMIA
     Route: 042
  3. AYGESTIN [Concomitant]
     Indication: ENDOMETRIOSIS
  4. AYGESTIN [Concomitant]
     Indication: UTERINE LEIOMYOMA

REACTIONS (2)
  - METRORRHAGIA [None]
  - VAGINAL HAEMORRHAGE [None]
